FAERS Safety Report 5422872-4 (Version None)
Quarter: 2007Q3

REPORT INFORMATION
  Report Type: 
  Country: None (occurrence: None)
  Receive Date: 20070727
  Receipt Date: 20070403
  Transmission Date: 20080115
  Serious: Yes (Hospitalization)
  Sender: FDA-Public Use
  Company Number: 262471

PATIENT
  Sex: Male

DRUGS (2)
  1. LEVEMIR FLEXPEN(INSULIN DETEMIR) SOLUTION FOR INJECTIO, .0024MOL/L [Suspect]
     Indication: TYPE 1 DIABETES MELLITUS
     Dosage: 47 IU, QD, SUBCUTANEOUS
     Route: 058
  2. NOVOLOG [Suspect]
     Indication: TYPE 1 DIABETES MELLITUS
     Dosage: 47 IUG, QD, SUBCUTANEOUS
     Route: 058

REACTIONS (1)
  - DIABETIC KETOACIDOSIS [None]
